FAERS Safety Report 8518688 (Version 8)
Quarter: 2012Q4

REPORT INFORMATION
  Report Type: 
  Country: US (occurrence: US)
  Receive Date: 20120417
  Receipt Date: 20120904
  Transmission Date: 20130627
  Serious: Yes (Hospitalization, Disabling, Other)
  Sender: FDA-Public Use
  Company Number: US-009507513-1110USA02432

PATIENT

DRUGS (12)
  1. FOSAMAX [Suspect]
     Indication: OSTEOPENIA
     Dosage: 10 mg, UNK
     Route: 048
     Dates: start: 1997, end: 2000
  2. FOSAMAX [Suspect]
     Indication: OSTEOPOROSIS
     Dosage: 70 mg, QW
     Route: 048
     Dates: start: 2000, end: 200610
  3. FOSAMAX [Suspect]
     Dosage: 80 mg, QW
     Route: 048
  4. BONIVA [Suspect]
     Indication: OSTEOPENIA
     Dosage: 150 mg, QM
     Dates: start: 200610, end: 200907
  5. BONIVA [Suspect]
     Indication: OSTEOPOROSIS
  6. ALENDRONATE SODIUM [Suspect]
     Indication: OSTEOPENIA
     Dosage: 70 mg, QW
     Dates: start: 20090720, end: 201001
  7. ALENDRONATE SODIUM [Suspect]
     Indication: OSTEOPOROSIS
  8. CALCIUM (UNSPECIFIED) [Concomitant]
  9. CALCIUM (UNSPECIFIED) (+) VITAMIN D (UNSPECIFIED) [Concomitant]
     Dosage: UNK UNK, bid
  10. MK-9278 [Concomitant]
     Dosage: UNK UNK, qd
  11. VITAMIN D (UNSPECIFIED) [Concomitant]
     Indication: COELIAC DISEASE
     Dosage: UNK UNK, QW
  12. TAMOXIFEN CITRATE [Concomitant]
     Indication: BREAST CANCER
     Dates: start: 1993

REACTIONS (61)
  - Osteonecrosis of jaw [Not Recovered/Not Resolved]
  - Meniscus injury [Not Recovered/Not Resolved]
  - Tooth disorder [Unknown]
  - Gingival disorder [Unknown]
  - Attention deficit/hyperactivity disorder [Unknown]
  - Hand fracture [Unknown]
  - Wrist fracture [Unknown]
  - Foot fracture [Not Recovered/Not Resolved]
  - Cellulitis [Recovering/Resolving]
  - Coeliac disease [Unknown]
  - Iron deficiency anaemia [Recovered/Resolved]
  - Urethritis noninfective [Unknown]
  - Uterine polyp [Recovered/Resolved]
  - Diverticulum [Unknown]
  - Capsular contracture associated with breast implant [Unknown]
  - Haemorrhoids [Unknown]
  - Lymphadenopathy [Unknown]
  - Vitamin D deficiency [Unknown]
  - Viral infection [Unknown]
  - Contusion [Unknown]
  - Fall [Unknown]
  - Upper limb fracture [Unknown]
  - Abnormal loss of weight [Unknown]
  - Palpitations [Unknown]
  - Muscle spasms [Unknown]
  - Dizziness postural [Unknown]
  - Hypoaesthesia [Unknown]
  - Skin discolouration [Unknown]
  - Flank pain [Unknown]
  - Headache [Unknown]
  - Mental disorder [Unknown]
  - Peptic ulcer [Unknown]
  - Bronchitis [Unknown]
  - Nasal septum deviation [Unknown]
  - Fatigue [Not Recovered/Not Resolved]
  - Vitamin B12 deficiency [Unknown]
  - Overdose [Unknown]
  - Stomatitis [Unknown]
  - Drug ineffective [Unknown]
  - Sensation of foreign body [Unknown]
  - Aphthous stomatitis [Not Recovered/Not Resolved]
  - Body height decreased [Unknown]
  - Coccidioidomycosis [Unknown]
  - Tooth fracture [Unknown]
  - Temporomandibular joint syndrome [Unknown]
  - Arthropathy [Unknown]
  - Exposed bone in jaw [Unknown]
  - Oral disorder [Unknown]
  - Hypotension [Unknown]
  - Dizziness [Unknown]
  - Chest discomfort [Unknown]
  - Ear infection [Unknown]
  - Rash [Unknown]
  - Pneumonia [Unknown]
  - Bronchitis [Unknown]
  - Pulmonary mass [Unknown]
  - Device breakage [Unknown]
  - Acute sinusitis [Unknown]
  - Multiple injuries [None]
  - Unevaluable event [None]
  - Exostosis [None]
